FAERS Safety Report 8599391-X (Version None)
Quarter: 2012Q3

REPORT INFORMATION
  Report Type: 
  Country: None (occurrence: None)
  Receive Date: 20120816
  Receipt Date: 20120814
  Transmission Date: 20120928
  Serious: Yes (Other)
  Sender: FDA-Public Use
  Company Number: PHEH2012US015968

PATIENT
  Sex: Female

DRUGS (6)
  1. FAMPRIDINE [Concomitant]
     Dosage: 10 MG, BID
  2. ATIVAN [Concomitant]
     Dosage: 1 MG, UNK
  3. AMBIEN [Concomitant]
     Dosage: 5 MG, UNK
  4. GILENYA [Suspect]
     Indication: MULTIPLE SCLEROSIS
     Dosage: 0.5 MG, QD
     Route: 048
     Dates: start: 20110201
  5. WELLBUTRIN XL [Concomitant]
     Dosage: 300 MG, UNK
  6. ABILIFY [Concomitant]
     Dosage: 10 MG, UNK

REACTIONS (1)
  - CENTRAL NERVOUS SYSTEM LESION [None]
